FAERS Safety Report 5167474-2 (Version None)
Quarter: 2006Q4

REPORT INFORMATION
  Report Type: 
  Country: None (occurrence: None)
  Receive Date: 20061130
  Receipt Date: 20061117
  Transmission Date: 20070319
  Serious: Yes (Other)
  Sender: FDA-Public Use
  Company Number: 15186

PATIENT
  Age: 26 Week
  Sex: Female
  Weight: 0.75 kg

DRUGS (1)
  1. DOPAMINE HCL [Suspect]
     Indication: HYPOTENSION
     Dosage: 4 MCG/KG PER MINUTE

REACTIONS (1)
  - HYPOTHYROIDISM [None]
